FAERS Safety Report 24269934 (Version 1)
Quarter: 2024Q3

REPORT INFORMATION
  Report Type: Spontaneous
  Country: PL (occurrence: PL)
  Receive Date: 20240830
  Receipt Date: 20240830
  Transmission Date: 20241016
  Serious: Yes (Other)
  Sender: DR REDDYS
  Company Number: PL-GERMAN-SPO/POL/24/0012546

PATIENT
  Age: 72 Year
  Sex: Male

DRUGS (2)
  1. BORTEZOMIB [Suspect]
     Active Substance: BORTEZOMIB
     Indication: Plasmacytoma
     Route: 058
  2. DEXAMETHASONE [Suspect]
     Active Substance: DEXAMETHASONE
     Indication: Plasmacytoma

REACTIONS (5)
  - Haemorrhage [Unknown]
  - Anaemia [Unknown]
  - Dizziness [Unknown]
  - Drug intolerance [Unknown]
  - Product use in unapproved indication [Unknown]
